FAERS Safety Report 7313478-0 (Version None)
Quarter: 2011Q1

REPORT INFORMATION
  Report Type: 
  Country: None (occurrence: None)
  Receive Date: 20110225
  Receipt Date: 20110218
  Transmission Date: 20110831
  Serious: No
  Sender: FDA-Public Use
  Company Number: US-PFIZER INC-2011015175

PATIENT
  Age: 61 Year
  Sex: Male
  Weight: 99.773 kg

DRUGS (3)
  1. ADVIL CONGESTION RELIEF [Suspect]
     Indication: NASOPHARYNGITIS
     Dosage: 1 TAB Q4-6 HRS
     Route: 048
     Dates: start: 20110118, end: 20110118
  2. NORVASC [Concomitant]
  3. ZIAC [Concomitant]

REACTIONS (1)
  - DRUG INEFFECTIVE [None]
